FAERS Safety Report 9150835 (Version 2)
Quarter: 2013Q2

REPORT INFORMATION
  Report Type: Spontaneous
  Country: US (occurrence: US)
  Receive Date: 20130308
  Receipt Date: 20130510
  Transmission Date: 20140414
  Serious: Yes (Death)
  Sender: FDA-Public Use
  Company Number: US-CELGENEUS-163-21880-13030697

PATIENT
  Sex: Male

DRUGS (1)
  1. REVLIMID [Suspect]
     Indication: HODGKIN^S DISEASE
     Dosage: 10 MILLIGRAM
     Route: 048
     Dates: start: 20130123, end: 20130213

REACTIONS (1)
  - Hodgkin^s disease [Fatal]
